FAERS Safety Report 24583322 (Version 1)
Quarter: 2024Q4

REPORT INFORMATION
  Report Type: Spontaneous
  Country: CN (occurrence: CN)
  Receive Date: 20241106
  Receipt Date: 20241106
  Transmission Date: 20250114
  Serious: Yes (Other)
  Sender: BAXTER
  Company Number: None

PATIENT
  Age: 55 Year
  Sex: Female
  Weight: 46.7 kg

DRUGS (2)
  1. CYCLOPHOSPHAMIDE [Suspect]
     Active Substance: CYCLOPHOSPHAMIDE
     Indication: Plasma cell myeloma
     Dosage: 0.42 G, ONE TIME IN ONE DAY, DILUTED WITH 0.9% SODIUM CHLORIDE 50ML
     Route: 042
     Dates: start: 20241009, end: 20241009
  2. SODIUM CHLORIDE [Suspect]
     Active Substance: SODIUM CHLORIDE
     Indication: Medication dilution
     Dosage: 50 ML (0.9%), ONE TIME IN ONE DAY, USED TO DILUTE CYCLOPHOSPHAMIDE 0.42 G
     Route: 042
     Dates: start: 20241009, end: 20241009

REACTIONS (1)
  - Myelosuppression [Recovered/Resolved]

NARRATIVE: CASE EVENT DATE: 20241019
